FAERS Safety Report 7861833-2 (Version None)
Quarter: 2011Q4

REPORT INFORMATION
  Report Type: 
  Country: None (occurrence: None)
  Receive Date: 20111027
  Receipt Date: 20111021
  Transmission Date: 20120403
  Serious: Yes (Hospitalization)
  Sender: FDA-Public Use
  Company Number: FR-GILEAD-2011-0045749

PATIENT
  Sex: Male

DRUGS (5)
  1. PLAVIX [Concomitant]
     Dosage: 1 UNK, UNK
  2. KALETRA [Concomitant]
     Dosage: 800 MG, UNK
  3. ASPIRIN [Concomitant]
  4. VIREAD [Suspect]
     Indication: HIV INFECTION
     Dosage: 1 DF, UNK
     Route: 048
     Dates: start: 20010621
  5. CRESTOR [Concomitant]
     Dosage: 10 MG, UNK

REACTIONS (1)
  - RENAL TUBULAR DISORDER [None]
